FAERS Safety Report 5165318-6 (Version None)
Quarter: 2006Q4

REPORT INFORMATION
  Report Type: 
  Country: None (occurrence: None)
  Receive Date: 20061206
  Receipt Date: 20061004
  Transmission Date: 20070319
  Serious: Yes (Hospitalization)
  Sender: FDA-Public Use
  Company Number: PHRM2006FR02763

PATIENT
  Age: 67 Year
  Sex: Female

DRUGS (8)
  1. COTAREG [Suspect]
     Dosage: 1 DF, QD
     Route: 048
  2. PROZAC [Suspect]
     Dosage: 20 MG, QD
     Route: 048
  3. EUPRESSYL [Suspect]
     Dosage: 60 MG, BID
     Route: 048
  4. FUROSEMIDE ^DAKOTA PHARM^ [Suspect]
     Dosage: 20 MG, QD
     Route: 048
  5. ALDACTONE [Suspect]
     Route: 048
  6. DIGOXIN [Suspect]
  7. SINTROM [Suspect]
     Dosage: 3 MG/DAY
     Route: 048
  8. AVLOCARDYL [Suspect]
     Dosage: 20 MG, QD
     Route: 048

REACTIONS (4)
  - AUTOIMMUNE DISORDER [None]
  - DERMATITIS BULLOUS [None]
  - PRURITUS [None]
  - SKIN LESION [None]
